FAERS Safety Report 9717742 (Version 1)
Quarter: 2013Q4

REPORT INFORMATION
  Report Type: Spontaneous
  Country: AT (occurrence: AT)
  Receive Date: 20131127
  Receipt Date: 20131127
  Transmission Date: 20140711
  Serious: Yes (Disabling, Other)
  Sender: FDA-Public Use
  Company Number: AT-TEVA-444906ISR

PATIENT
  Age: 8 Decade
  Sex: Male

DRUGS (9)
  1. SIMVASTATIN [Suspect]
     Indication: STENT PLACEMENT
     Dosage: 20 MILLIGRAM DAILY;
  2. SIMVASTATIN [Suspect]
     Indication: BLOOD CHOLESTEROL INCREASED
  3. BLOPRESS [Concomitant]
  4. CIPRALEX [Concomitant]
  5. PANTOPRAZOL [Concomitant]
  6. SINEMET [Concomitant]
     Indication: PARKINSON^S DISEASE
  7. ALPRAZOLAM [Concomitant]
  8. THROMBO ASS [Concomitant]
  9. PLAVIX [Concomitant]

REACTIONS (3)
  - Myalgia [Not Recovered/Not Resolved]
  - Muscle rigidity [Not Recovered/Not Resolved]
  - Parkinsonism [Not Recovered/Not Resolved]
